FAERS Safety Report 8565251-3 (Version None)
Quarter: 2012Q3

REPORT INFORMATION
  Report Type: 
  Country: None (occurrence: None)
  Receive Date: 20120803
  Receipt Date: 20120731
  Transmission Date: 20120928
  Serious: Yes (Life-Threatening)
  Sender: FDA-Public Use
  Company Number: FR-GLAXOSMITHKLINE-B0819640A

PATIENT
  Sex: Female

DRUGS (1)
  1. ATOVAQUONE [Suspect]
     Indication: PRODUCT USED FOR UNKNOWN INDICATION
     Dosage: 15G SINGLE DOSE
     Route: 050
     Dates: start: 20120701, end: 20120701

REACTIONS (5)
  - SPASTIC PARAPLEGIA [None]
  - ALTERED STATE OF CONSCIOUSNESS [None]
  - RESPIRATORY DISORDER [None]
  - ACCIDENTAL OVERDOSE [None]
  - POLYNEUROPATHY [None]
